FAERS Safety Report 5520411-0 (Version None)
Quarter: 2007Q4

REPORT INFORMATION
  Report Type: 
  Country: None (occurrence: None)
  Receive Date: 20071119
  Receipt Date: 20071106
  Transmission Date: 20080405
  Serious: Yes (Other)
  Sender: FDA-Public Use
  Company Number: US-PFIZER INC-2007084665

PATIENT
  Sex: Female
  Weight: 68.5 kg

DRUGS (2)
  1. CHANTIX [Suspect]
     Indication: SMOKER
     Route: 048
  2. CHANTIX [Suspect]
     Indication: CHRONIC OBSTRUCTIVE PULMONARY DISEASE

REACTIONS (5)
  - ANGER [None]
  - CHEST PAIN [None]
  - NAUSEA [None]
  - NIGHTMARE [None]
  - VENTRICULAR EXTRASYSTOLES [None]
